FAERS Safety Report 6425876-8 (Version None)
Quarter: 2009Q4

REPORT INFORMATION
  Report Type: 
  Country: None (occurrence: None)
  Receive Date: 20091030
  Receipt Date: 20091016
  Transmission Date: 20100525
  Serious: Yes (Hospitalization, Other)
  Sender: FDA-Public Use
  Company Number: 2009AC000284

PATIENT

DRUGS (19)
  1. DIGOXIN [Suspect]
     Dosage: 0.125 MG; QD
     Dates: start: 20080122
  2. ALTACE [Concomitant]
  3. COUMADIN [Concomitant]
  4. LASIX [Concomitant]
  5. TOPROL-XL [Concomitant]
  6. ALDACTONE [Concomitant]
  7. RAMIPRIL [Concomitant]
  8. BETAMETHASONE [Concomitant]
  9. HYDROCODONE BITARTRATE AND ACETAMINOPHEN [Concomitant]
  10. ZYMAR [Concomitant]
  11. LUMIGAN [Concomitant]
  12. COREG [Concomitant]
  13. ACULAR [Concomitant]
  14. CEPHALEXIN [Concomitant]
  15. HYDRALAZINE HCL [Concomitant]
  16. CIPRO [Concomitant]
  17. CARDIZEM [Concomitant]
  18. LABETALOL HCL [Concomitant]
  19. PROTONIX [Concomitant]

REACTIONS (15)
  - ABDOMINAL DISTENSION [None]
  - ABDOMINAL PAIN [None]
  - ABDOMINAL PAIN UPPER [None]
  - ANXIETY [None]
  - ATRIAL FIBRILLATION [None]
  - EMBOLIC STROKE [None]
  - FEELING ABNORMAL [None]
  - HEADACHE [None]
  - HEART RATE IRREGULAR [None]
  - INTERNATIONAL NORMALISED RATIO INCREASED [None]
  - LIVER FUNCTION TEST ABNORMAL [None]
  - NEPHROLITHIASIS [None]
  - SPLENIC INFARCTION [None]
  - TREATMENT NONCOMPLIANCE [None]
  - WEIGHT INCREASED [None]
